FAERS Safety Report 6843438-5 (Version None)
Quarter: 2010Q3

REPORT INFORMATION
  Report Type: 
  Country: None (occurrence: None)
  Receive Date: 20100715
  Receipt Date: 20100628
  Transmission Date: 20110219
  Serious: Yes (Hospitalization)
  Sender: FDA-Public Use
  Company Number: FR-JNJFOC-20100702963

PATIENT
  Sex: Male

DRUGS (16)
  1. TOPALGIC [Suspect]
     Indication: PAIN
     Route: 048
  2. CLOPIDOGREL BISULFATE [Interacting]
     Indication: PRODUCT USED FOR UNKNOWN INDICATION
     Route: 048
  3. BI-PROFENID [Suspect]
     Indication: PRODUCT USED FOR UNKNOWN INDICATION
     Route: 048
  4. HEPARIN SODIUM [Suspect]
     Indication: PRODUCT USED FOR UNKNOWN INDICATION
     Route: 065
  5. TRIMETAZIDINE [Concomitant]
  6. PANTOPRAZOLE [Concomitant]
  7. ROSUVASTATIN CALCIUM [Concomitant]
  8. NAFTIDROFURYL OXALATE [Concomitant]
  9. PREGABALIN [Concomitant]
  10. DAFALGAN [Concomitant]
  11. CLONAZEPAM [Concomitant]
  12. FUROSEMIDE [Concomitant]
  13. BISOPROLOL [Concomitant]
  14. RAMIPRIL [Concomitant]
  15. CONTRAMAL [Concomitant]
  16. ZOLPIDEM TARTRATE [Concomitant]

REACTIONS (6)
  - CIRCULATORY COLLAPSE [None]
  - DRUG INTERACTION [None]
  - HAEMATEMESIS [None]
  - MELAENA [None]
  - TACHYCARDIA [None]
  - UPPER GASTROINTESTINAL HAEMORRHAGE [None]
